FAERS Safety Report 12078655 (Version 1)
Quarter: 2016Q1

REPORT INFORMATION
  Report Type: Spontaneous
  Country: US (occurrence: US)
  Receive Date: 20160216
  Receipt Date: 20160216
  Transmission Date: 20160526
  Serious: No
  Sender: FDA-Public Use
  Company Number: US-ASTRAZENECA-2016SE13166

PATIENT
  Age: 6 Month
  Sex: Male
  Weight: 3.8 kg

DRUGS (2)
  1. SYNAGIS [Suspect]
     Active Substance: PALIVIZUMAB
     Indication: RESPIRATORY SYNCYTIAL VIRUS INFECTION
     Route: 030
     Dates: start: 20160119
  2. SYNAGIS [Suspect]
     Active Substance: PALIVIZUMAB
     Indication: RESPIRATORY SYNCYTIAL VIRUS INFECTION
     Route: 030
     Dates: start: 20151223

REACTIONS (4)
  - Nasopharyngitis [Unknown]
  - Nasal congestion [Unknown]
  - Rhinorrhoea [Unknown]
  - Respiratory syncytial virus test positive [Unknown]
